FAERS Safety Report 6260497-1 (Version None)
Quarter: 2009Q3

REPORT INFORMATION
  Report Type: 
  Country: None (occurrence: None)
  Receive Date: 20090708
  Receipt Date: 20090629
  Transmission Date: 20100115
  Serious: Yes (Other)
  Sender: FDA-Public Use
  Company Number: US-TEVA-200157USA

PATIENT
  Age: 38 Year
  Sex: Male

DRUGS (10)
  1. BLEOMYCIN SULFATE 15 UNITS/10 ML AND 30 UNITS/20ML [Suspect]
     Indication: HODGKIN'S DISEASE
  2. DACARBAZINE [Suspect]
     Indication: HODGKIN'S DISEASE
  3. IDARUBICIN [Suspect]
     Indication: HODGKIN'S DISEASE
  4. VINCRISTINE [Suspect]
     Indication: HODGKIN'S DISEASE
  5. CHLORMETHINE [Suspect]
     Indication: HODGKIN'S DISEASE
  6. PROCARBAZINE [Suspect]
     Indication: HODGKIN'S DISEASE
  7. PREDNISONE [Suspect]
     Indication: HODGKIN'S DISEASE
  8. DOXORUBICIN HCL [Suspect]
     Indication: HODGKIN'S DISEASE
  9. VINBLASTINE SULFATE [Suspect]
     Indication: HODGKIN'S DISEASE
  10. CYTARABINE [Suspect]
     Indication: HODGKIN'S DISEASE

REACTIONS (1)
  - ACUTE MYELOID LEUKAEMIA [None]
